FAERS Safety Report 22029302 (Version 1)
Quarter: 2023Q1

REPORT INFORMATION
  Report Type: Spontaneous
  Country: CA (occurrence: CA)
  Receive Date: 20230223
  Receipt Date: 20230223
  Transmission Date: 20230417
  Serious: Yes (Other)
  Sender: FDA-Public Use
  Company Number: CA-TEVA-2023-CA-2857717

PATIENT
  Age: 47 Year
  Sex: Female

DRUGS (1)
  1. MODAFINIL [Suspect]
     Active Substance: MODAFINIL
     Indication: Myotonic dystrophy
     Dosage: 400 MILLIGRAM DAILY;
     Route: 048

REACTIONS (1)
  - Hypersomnia [Recovered/Resolved]
